FAERS Safety Report 4552619-5 (Version None)
Quarter: 2005Q1

REPORT INFORMATION
  Report Type: 
  Country: None (occurrence: None)
  Receive Date: 20050114
  Receipt Date: 20041129
  Transmission Date: 20050727
  Serious: No
  Sender: FDA-Public Use
  Company Number: US-GLAXOSMITHKLINE-A0535392A

PATIENT
  Age: 67 Year
  Sex: Male
  Weight: 72.7 kg

DRUGS (3)
  1. IMITREX [Suspect]
     Indication: MIGRAINE
     Dosage: 6MG AS REQUIRED
     Route: 058
  2. ELAVIL [Concomitant]
  3. PRIMIDONE [Concomitant]

REACTIONS (1)
  - DRUG INEFFECTIVE [None]
